FAERS Safety Report 12132466 (Version 2)
Quarter: 2016Q1

REPORT INFORMATION
  Report Type: Report from Study
  Country: JP (occurrence: JP)
  Receive Date: 20160301
  Receipt Date: 20160331
  Transmission Date: 20160526
  Serious: Yes (Death)
  Sender: FDA-Public Use
  Company Number: JP-JT-EVA201600381KERYXP-001

PATIENT
  Age: 51 Year
  Sex: Male

DRUGS (10)
  1. CALCITRIOL. [Concomitant]
     Active Substance: CALCITRIOL
     Indication: HYPERPARATHYROIDISM SECONDARY
     Dosage: 15 MICROGRAM, QD
     Route: 042
     Dates: end: 20160214
  2. RIONA [Suspect]
     Active Substance: FERRIC CITRATE ANHYDROUS
     Indication: HYPERPHOSPHATAEMIA
     Dosage: 1500 MG, QD
     Route: 048
     Dates: start: 20151125, end: 20160214
  3. TANKARU [Concomitant]
     Indication: HYPERPHOSPHATAEMIA
     Dosage: 1.5 G, QD
     Route: 048
     Dates: end: 20160214
  4. COMPLAVIN [Concomitant]
     Active Substance: ASPIRIN\CLOPIDOGREL BISULFATE
     Dosage: 75 MG, QD
     Route: 048
     Dates: end: 20160214
  5. BLOPRESS [Concomitant]
     Active Substance: CANDESARTAN CILEXETIL
     Dosage: 8 MG, QD
     Route: 048
     Dates: end: 20160214
  6. TRAZENTA [Concomitant]
     Active Substance: LINAGLIPTIN
     Indication: DIABETIC NEPHROPATHY
     Dosage: 5 MG, QD
     Route: 048
     Dates: end: 20160214
  7. NEXIUM [Concomitant]
     Active Substance: ESOMEPRAZOLE MAGNESIUM
     Dosage: 10 MG, QD
     Route: 048
  8. VOGLIBOSE [Concomitant]
     Active Substance: VOGLIBOSE
     Indication: DIABETIC NEPHROPATHY
     Dosage: 0.9 MG, QD
     Route: 048
     Dates: end: 20160214
  9. AMLODIPINE [Concomitant]
     Active Substance: AMLODIPINE BESYLATE
     Dosage: 5 MG, QD
     Route: 048
     Dates: end: 20160214
  10. GLUFAST [Concomitant]
     Active Substance: MITIGLINIDE
     Indication: DIABETIC NEPHROPATHY
     Dosage: 30 MG, QD
     Route: 048
     Dates: end: 20160214

REACTIONS (1)
  - Myocardial infarction [Fatal]

NARRATIVE: CASE EVENT DATE: 20160214
